FAERS Safety Report 6584796-9 (Version None)
Quarter: 2010Q1

REPORT INFORMATION
  Report Type: 
  Country: None (occurrence: None)
  Receive Date: 20100204
  Receipt Date: 20100120
  Transmission Date: 20100710
  Serious: Yes (Life-Threatening, Hospitalization, Other)
  Sender: FDA-Public Use
  Company Number: AUR-APL-2010-00211

PATIENT
  Age: 67 Year
  Sex: Female

DRUGS (3)
  1. METOPROLOL TARTRATE [Suspect]
     Indication: HYPERTENSION
     Dosage: 50MG, BID
  2. DIPYRIDAMOLE [Suspect]
     Indication: CARDIAC STRESS TEST
     Dosage: IV
     Route: 042
  3. THEOPHYLLINE [Suspect]

REACTIONS (10)
  - ACUTE CORONARY SYNDROME [None]
  - ATRIAL FIBRILLATION [None]
  - BLOOD PRESSURE DECREASED [None]
  - CARDIAC ARREST [None]
  - CHEST DISCOMFORT [None]
  - DIZZINESS [None]
  - INFUSION RELATED REACTION [None]
  - ISCHAEMIA [None]
  - LOSS OF CONSCIOUSNESS [None]
  - NAUSEA [None]
